FAERS Safety Report 13081979 (Version 3)
Quarter: 2017Q1

REPORT INFORMATION
  Report Type: Spontaneous
  Country: CH (occurrence: CH)
  Receive Date: 20170103
  Receipt Date: 20170217
  Transmission Date: 20170428
  Serious: Yes (Other)
  Sender: FDA-Public Use
  Company Number: CH-PFIZER INC-2016604339

PATIENT
  Age: 5 Year
  Sex: Female

DRUGS (2)
  1. PACLITAXEL. [Suspect]
     Active Substance: PACLITAXEL
     Dosage: 175 MG/M2, AT 28 AND 31 WEEKS
     Route: 064
  2. CISPLATIN. [Suspect]
     Active Substance: CISPLATIN
     Dosage: 75 MG/M2, AT 28 AND 31 WEEKS
     Route: 064

REACTIONS (2)
  - Embryonal rhabdomyosarcoma [Recovered/Resolved]
  - Foetal exposure during pregnancy [Recovered/Resolved]
